FAERS Safety Report 13752746 (Version 8)
Quarter: 2017Q4

REPORT INFORMATION
  Report Type: Spontaneous
  Country: US (occurrence: US)
  Receive Date: 20170713
  Receipt Date: 20171013
  Transmission Date: 20180320
  Serious: No
  Sender: FDA-Public Use
  Company Number: US-PFIZER INC-2017275544

PATIENT
  Age: 77 Year
  Sex: Male

DRUGS (11)
  1. SUTENT [Suspect]
     Active Substance: SUNITINIB MALATE
     Indication: NEOPLASM SKIN
     Dosage: 37.5 MG, DAILY
     Dates: start: 20170622, end: 20170707
  2. LASIX [Concomitant]
     Active Substance: FUROSEMIDE
     Dosage: UNK
  3. METOPROLOL. [Concomitant]
     Active Substance: METOPROLOL
     Dosage: UNK
  4. FLOMAX [Concomitant]
     Active Substance: TAMSULOSIN HYDROCHLORIDE
     Dosage: UNK
  5. LIPITOR [Concomitant]
     Active Substance: ATORVASTATIN CALCIUM
     Dosage: UNK
  6. HYTRIN [Concomitant]
     Active Substance: TERAZOSIN HYDROCHLORIDE
     Dosage: UNK
  7. DIGOXIN. [Concomitant]
     Active Substance: DIGOXIN
     Dosage: UNK
  8. DILTIAZEM. [Concomitant]
     Active Substance: DILTIAZEM
     Dosage: UNK
  9. COUMADIN [Concomitant]
     Active Substance: WARFARIN SODIUM
     Dosage: UNK
  10. SUTENT [Suspect]
     Active Substance: SUNITINIB MALATE
     Indication: HAEMANGIOPERICYTOMA
     Dosage: 25 MG, CYCLIC (2 WEEKS ON AND 1 WEEK OFF)
     Dates: start: 20170726
  11. PROTONIX [Concomitant]
     Active Substance: PANTOPRAZOLE SODIUM
     Dosage: UNK

REACTIONS (8)
  - Balance disorder [Unknown]
  - Cough [Unknown]
  - Asthenia [Unknown]
  - Fatigue [Unknown]
  - Dysgeusia [Unknown]
  - Product use in unapproved indication [Unknown]
  - Drug level increased [Unknown]
  - Diarrhoea [Unknown]

NARRATIVE: CASE EVENT DATE: 2017
